FAERS Safety Report 6532625-1 (Version None)
Quarter: 2010Q1

REPORT INFORMATION
  Report Type: 
  Country: None (occurrence: None)
  Receive Date: 20100111
  Receipt Date: 20091002
  Transmission Date: 20100710
  Serious: Yes (Other)
  Sender: FDA-Public Use
  Company Number: IE-CELGENEUS-229-20484-09121731

PATIENT
  Sex: Male
  Weight: 2.33 kg

DRUGS (3)
  1. INNOHEP [Suspect]
     Route: 064
     Dates: start: 20070524, end: 20070730
  2. DEXAMETHASONE [Concomitant]
     Route: 064
     Dates: start: 20070722, end: 20070723
  3. AMOXICILLIN [Concomitant]
     Route: 064
     Dates: start: 20070730, end: 20070730

REACTIONS (2)
  - DRUG EXPOSURE DURING PREGNANCY [None]
  - PREMATURE BABY [None]
